FAERS Safety Report 7460638-4 (Version None)
Quarter: 2011Q2

REPORT INFORMATION
  Report Type: 
  Country: None (occurrence: None)
  Receive Date: 20110505
  Receipt Date: 20110504
  Transmission Date: 20111010
  Serious: Yes (Disabling, Other)
  Sender: FDA-Public Use
  Company Number: AU-ABBOTT-11P-008-0723172-00

PATIENT
  Sex: Female
  Weight: 79 kg

DRUGS (1)
  1. REDUCTIL [Suspect]
     Indication: PRODUCT USED FOR UNKNOWN INDICATION
     Route: 048
     Dates: start: 20100601, end: 20100730

REACTIONS (4)
  - JOINT SWELLING [None]
  - JOINT STIFFNESS [None]
  - TENOSYNOVITIS [None]
  - ARTHRALGIA [None]
